FAERS Safety Report 10083875 (Version 2)
Quarter: 2014Q2

REPORT INFORMATION
  Report Type: Spontaneous
  Country: JP (occurrence: JP)
  Receive Date: 20140417
  Receipt Date: 20140417
  Transmission Date: 20141212
  Serious: Yes (Death, Hospitalization, Other)
  Sender: FDA-Public Use
  Company Number: PHHY2013JP024977

PATIENT
  Age: 56 Year
  Sex: Female
  Weight: 40 kg

DRUGS (11)
  1. AFINITOR [Suspect]
     Indication: PANCREATIC NEUROENDOCRINE TUMOUR
     Dosage: 10 MG, DAILY
     Route: 048
     Dates: start: 20120416, end: 20121112
  2. SUTENT [Suspect]
     Indication: PANCREATIC NEUROENDOCRINE TUMOUR
     Dosage: 37.5 MG, DAILY
     Route: 048
     Dates: start: 20121015, end: 20121112
  3. TS-1 [Concomitant]
     Indication: PANCREATIC NEUROENDOCRINE TUMOUR
     Dosage: 80 MG
     Route: 048
     Dates: start: 20120903, end: 20121112
  4. SANDOSTATIN [Concomitant]
     Indication: PANCREATIC NEUROENDOCRINE TUMOUR
     Dosage: 100 UG
     Route: 058
     Dates: start: 20120316, end: 20120427
  5. SANDOSTATIN LAR [Concomitant]
     Indication: PANCREATIC NEUROENDOCRINE TUMOUR
     Route: 030
     Dates: start: 20120428, end: 20121029
  6. TAKEPRON [Concomitant]
     Indication: PROPHYLAXIS
     Dosage: 15 MG
     Route: 048
     Dates: end: 20121112
  7. BIOFERMIN [Concomitant]
     Indication: PROPHYLAXIS
     Dosage: 3 DF
     Route: 048
     Dates: end: 20121112
  8. MAGMITT [Concomitant]
     Indication: PROPHYLAXIS
     Dosage: 990 MG, DAILY
     Route: 048
     Dates: end: 20121112
  9. KAMOSTAAL [Concomitant]
     Indication: PROPHYLAXIS
     Dosage: 6 DF
     Route: 048
     Dates: end: 20120617
  10. URDESTON [Concomitant]
     Indication: PROPHYLAXIS
     Dosage: 300 MG, DAILY
     Route: 048
     Dates: start: 20120801, end: 20121112
  11. COSPANON [Concomitant]
     Indication: PROPHYLAXIS
     Dosage: 3 DF
     Route: 048
     Dates: start: 20120801, end: 20121112

REACTIONS (8)
  - Malignant neoplasm progression [Fatal]
  - Platelet count decreased [Recovered/Resolved]
  - General physical health deterioration [Unknown]
  - Haemoglobin decreased [Unknown]
  - Lymphocyte count decreased [Unknown]
  - Blood bilirubin increased [Unknown]
  - Aspartate aminotransferase increased [Unknown]
  - Blood lactate dehydrogenase increased [Unknown]
